FAERS Safety Report 23276573 (Version 1)
Quarter: 2023Q4

REPORT INFORMATION
  Report Type: Spontaneous
  Country: FR (occurrence: FR)
  Receive Date: 20231208
  Receipt Date: 20231208
  Transmission Date: 20240110
  Serious: Yes (Hospitalization)
  Sender: FDA-Public Use
  Company Number: None

PATIENT
  Age: 38 Year
  Sex: Male

DRUGS (3)
  1. BUPRENORPHINE [Suspect]
     Active Substance: BUPRENORPHINE
     Indication: Product used for unknown indication
     Dosage: 6-7 TABLETS/DAY
     Route: 030
  2. VALIUM [Suspect]
     Active Substance: DIAZEPAM
     Indication: Product used for unknown indication
     Dosage: QD, UP TO 70MG/DAY
     Route: 048
  3. COCAINE [Suspect]
     Active Substance: COCAINE
     Indication: Product used for unknown indication
     Dosage: 7 TO 8 STONES OVERNIGHT (ONE DAY IN 3), 6-7 TABLETS/DAY
     Route: 042

REACTIONS (4)
  - Drug dependence [Recovering/Resolving]
  - Abnormal loss of weight [Recovering/Resolving]
  - Tooth disorder [Not Recovered/Not Resolved]
  - Intentional product misuse [Recovered/Resolved]
